FAERS Safety Report 5252742-6 (Version None)
Quarter: 2007Q1

REPORT INFORMATION
  Report Type: 
  Country: None (occurrence: None)
  Receive Date: 20070301
  Receipt Date: 20061121
  Transmission Date: 20070707
  Serious: No
  Sender: FDA-Public Use
  Company Number: US-GLAXOSMITHKLINE-A0628304A

PATIENT
  Age: 60 Year
  Sex: Male

DRUGS (3)
  1. LAMICTAL [Suspect]
     Indication: DRUG USE FOR UNKNOWN INDICATION
     Dosage: 100MG PER DAY
     Route: 048
     Dates: end: 20061114
  2. SEROQUEL [Concomitant]
  3. XANAX [Concomitant]

REACTIONS (2)
  - ORAL MUCOSAL BLISTERING [None]
  - PHARMACEUTICAL PRODUCT COMPLAINT [None]
